FAERS Safety Report 4714460-X (Version None)
Quarter: 2005Q3

REPORT INFORMATION
  Report Type: 
  Country: None (occurrence: None)
  Receive Date: 20050705
  Receipt Date: 20050415
  Transmission Date: 20060218
  Serious: Yes (Other)
  Sender: FDA-Public Use
  Company Number: 2005-0008031

PATIENT
  Age: 37 Year
  Sex: Male

DRUGS (6)
  1. VIREAD [Suspect]
     Indication: HIV INFECTION
     Dosage: 300 MG, 1 IN 1 D, ORAL
     Route: 048
     Dates: start: 20040703, end: 20041116
  2. TRIZIVIR [Concomitant]
  3. REYATAZ [Concomitant]
  4. NORVIR [Concomitant]
  5. BACTRIM [Concomitant]
  6. DILANTIN [Concomitant]

REACTIONS (1)
  - RENAL FAILURE [None]
